FAERS Safety Report 13991520 (Version 3)
Quarter: 2017Q3

REPORT INFORMATION
  Report Type: Spontaneous
  Country: US (occurrence: US)
  Receive Date: 20170920
  Receipt Date: 20170930
  Transmission Date: 20171128
  Serious: Yes (Death, Life-Threatening, Hospitalization, Disabling, Other)
  Sender: FDA-Public Use
  Company Number: US-009507513-1709USA008704

PATIENT
  Age: 79 Year
  Sex: Male
  Weight: 76.64 kg

DRUGS (1)
  1. KEYTRUDA [Suspect]
     Active Substance: PEMBROLIZUMAB
     Indication: LUNG CANCER METASTATIC
     Dosage: 200 MG, (Q21D) EVERY 21 DAY(HAD FOUR DOSES)
     Route: 042
     Dates: start: 20170619, end: 20170821

REACTIONS (7)
  - Death [Fatal]
  - Microangiopathic haemolytic anaemia [Not Recovered/Not Resolved]
  - Diarrhoea [Unknown]
  - Dyspnoea [Fatal]
  - Haemolytic uraemic syndrome [Not Recovered/Not Resolved]
  - Thrombotic thrombocytopenic purpura [Not Recovered/Not Resolved]
  - Autoimmune haemolytic anaemia [Not Recovered/Not Resolved]

NARRATIVE: CASE EVENT DATE: 20170903
